FAERS Safety Report 4413254-2 (Version None)
Quarter: 2004Q3

REPORT INFORMATION
  Report Type: 
  Country: None (occurrence: None)
  Receive Date: 20040802
  Receipt Date: 20040618
  Transmission Date: 20050211
  Serious: Yes (Other)
  Sender: FDA-Public Use
  Company Number: PHBS2004BR08214

PATIENT
  Age: 33 Year
  Sex: Female
  Weight: 68 kg

DRUGS (4)
  1. MELLARIL [Suspect]
     Indication: DEPRESSION
     Dosage: 50 MG/D
     Route: 048
  2. MELLARIL [Suspect]
     Dosage: 50 MG/D
     Route: 048
     Dates: start: 20000501
  3. RIVOTRIL [Suspect]
     Indication: DEPRESSION
     Dosage: 12 DROPS/D
     Route: 048
     Dates: start: 20000501
  4. TRYPTANOL [Suspect]
     Indication: DEPRESSION
     Dosage: 25 MG/D
     Route: 048
     Dates: start: 20000501

REACTIONS (5)
  - HEADACHE [None]
  - HUNGER [None]
  - SOMNOLENCE [None]
  - THIRST [None]
  - WEIGHT INCREASED [None]
